FAERS Safety Report 19676075 (Version 2)
Quarter: 2022Q1

REPORT INFORMATION
  Report Type: Report from Study
  Country: DE (occurrence: DE)
  Receive Date: 20210809
  Receipt Date: 20220105
  Transmission Date: 20220423
  Serious: Yes (Hospitalization, Other)
  Sender: FDA-Public Use
  Company Number: DE-TAKEDA-DE201936917

PATIENT
  Age: 25 Year
  Sex: Female
  Weight: 63 kg

DRUGS (8)
  1. ESOMEPRAZOLE [Suspect]
     Active Substance: ESOMEPRAZOLE
     Indication: Gastric disorder
     Dosage: 20 MILLIGRAM
     Route: 048
     Dates: end: 201909
  2. HYDROCORTISONE [Suspect]
     Active Substance: HYDROCORTISONE
     Indication: Addison^s disease
     Dosage: 20 MILLIGRAM DAILY;
     Route: 048
     Dates: start: 201510, end: 20200225
  3. HYDROCORTISONE [Suspect]
     Active Substance: HYDROCORTISONE
     Indication: Adrenal insufficiency
     Dosage: 25 MILLIGRAM DAILY;
     Route: 048
     Dates: start: 20200226, end: 20200409
  4. FOLIC ACID\VITAMINS [Suspect]
     Active Substance: FOLIC ACID\VITAMINS
     Indication: Alopecia
     Dosage: 3.6 GRAM DAILY;
     Route: 048
  5. FLUDROCORTISONE [Suspect]
     Active Substance: FLUDROCORTISONE
     Indication: Hypoaldosteronism
     Dosage: .15 MILLIGRAM DAILY;
     Route: 048
     Dates: end: 202001
  6. FLUDROCORTISONE [Suspect]
     Active Substance: FLUDROCORTISONE
     Dosage: .2 MILLIGRAM DAILY;
     Route: 048
     Dates: start: 202001
  7. FLUDROCORTISONE [Suspect]
     Active Substance: FLUDROCORTISONE
     Dosage: .1 MILLIGRAM DAILY;
     Route: 048
     Dates: start: 201906, end: 20190926
  8. CYANOCOBALAMIN\PYRIDOXINE HYDROCHLORIDE\THIAMINE [Suspect]
     Active Substance: CYANOCOBALAMIN\PYRIDOXINE HYDROCHLORIDE\THIAMINE
     Indication: Hyperemesis gravidarum
     Dosage: UNK UNK, QD
     Route: 048

REACTIONS (2)
  - Hyperemesis gravidarum [Recovered/Resolved]
  - Maternal exposure during pregnancy [Unknown]

NARRATIVE: CASE EVENT DATE: 20190926
